FAERS Safety Report 6016478-6 (Version None)
Quarter: 2008Q4

REPORT INFORMATION
  Report Type: 
  Country: None (occurrence: None)
  Receive Date: 20081222
  Receipt Date: 20081211
  Transmission Date: 20090506
  Serious: Yes (Hospitalization)
  Sender: FDA-Public Use
  Company Number: US-BAXTER-2008BH013720

PATIENT
  Age: 57 Year
  Sex: Female
  Weight: 94 kg

DRUGS (4)
  1. CYCLOPHOSPHAMIDE [Suspect]
     Indication: BREAST CANCER
     Route: 065
     Dates: start: 20080910
  2. ADRIAMYCIN PFS [Suspect]
     Indication: BREAST CANCER
     Route: 065
     Dates: start: 20080910
  3. ARANESP [Suspect]
     Indication: ANAEMIA OF MALIGNANT DISEASE
     Route: 058
     Dates: start: 20080910
  4. PACLITAXEL [Suspect]
     Indication: BREAST CANCER
     Route: 042
     Dates: start: 20081002

REACTIONS (3)
  - PANCYTOPENIA [None]
  - PYREXIA [None]
  - SKIN ULCER [None]
